FAERS Safety Report 25450132 (Version 1)
Quarter: 2025Q2

REPORT INFORMATION
  Report Type: Report from Study
  Country: PL (occurrence: PL)
  Receive Date: 20250618
  Receipt Date: 20250618
  Transmission Date: 20250716
  Serious: Yes (Hospitalization, Other)
  Sender: AUROBINDO
  Company Number: PL-GERMAN-POL/2025/05/007530

PATIENT
  Age: 41 Year
  Sex: Male

DRUGS (7)
  1. BORTEZOMIB [Suspect]
     Active Substance: BORTEZOMIB
     Indication: Chemotherapy
     Route: 065
  2. THALIDOMIDE [Suspect]
     Active Substance: THALIDOMIDE
     Indication: Plasma cell myeloma
     Route: 065
  3. DEXAMETHASONE [Suspect]
     Active Substance: DEXAMETHASONE
     Indication: Plasma cell myeloma
     Route: 065
  4. MELPHALAN [Concomitant]
     Active Substance: MELPHALAN
     Indication: Product used for unknown indication
     Route: 042
  5. MEROPENEM [Concomitant]
     Active Substance: MEROPENEM
     Indication: Antibiotic therapy
     Route: 065
  6. AMIKACIN [Concomitant]
     Active Substance: AMIKACIN
     Indication: Antibiotic therapy
     Route: 065
  7. VANCOMYCIN [Concomitant]
     Active Substance: VANCOMYCIN
     Indication: Antibiotic therapy
     Route: 042

REACTIONS (1)
  - Pneumocystis jirovecii infection [Recovered/Resolved]
